FAERS Safety Report 9401522 (Version 1)
Quarter: 2013Q3

REPORT INFORMATION
  Report Type: Spontaneous
  Country: IE (occurrence: IE)
  Receive Date: 20130716
  Receipt Date: 20130716
  Transmission Date: 20140515
  Serious: Yes (Other)
  Sender: FDA-Public Use
  Company Number: IE-ROCHE-1246867

PATIENT
  Sex: 0

DRUGS (1)
  1. LARIAM [Suspect]
     Indication: PRODUCT USED FOR UNKNOWN INDICATION
     Route: 065

REACTIONS (24)
  - Mental disorder [Unknown]
  - Depression [Unknown]
  - Drug prescribing error [Unknown]
  - Abnormal dreams [Unknown]
  - Anxiety [Unknown]
  - Paranoia [Unknown]
  - Agitation [Unknown]
  - Confusional state [Unknown]
  - Memory impairment [Unknown]
  - Hallucination [Unknown]
  - Suicidal ideation [Unknown]
  - Psychotic disorder [Unknown]
  - Disorientation [Unknown]
  - Abdominal pain [Unknown]
  - Deafness [Unknown]
  - Heart rate irregular [Unknown]
  - Panic attack [Unknown]
  - Tinnitus [Unknown]
  - Nausea [Unknown]
  - Menstrual disorder [Unknown]
  - Hypertension [Unknown]
  - Dizziness [Unknown]
  - Convulsion [Unknown]
  - Nervous system disorder [Unknown]
